FAERS Safety Report 21181577 (Version 1)
Quarter: 2022Q3

REPORT INFORMATION
  Report Type: Spontaneous
  Country: US (occurrence: US)
  Receive Date: 20220806
  Receipt Date: 20220806
  Transmission Date: 20221027
  Serious: Yes (Hospitalization)
  Sender: FDA-Public Use
  Company Number: US-SANOFI-01212937

PATIENT
  Sex: Female

DRUGS (4)
  1. LANTUS [Suspect]
     Active Substance: INSULIN GLARGINE
     Indication: Type 2 diabetes mellitus
     Dosage: TWICE DAILY WITH 8 U IN THE MORNING AND 10 IN THE EVENING
     Dates: start: 202201
  2. LANTUS [Suspect]
     Active Substance: INSULIN GLARGINE
     Dosage: 18IU QD
  3. LANTUS [Suspect]
     Active Substance: INSULIN GLARGINE
     Dosage: 14U, QD
  4. METFORMIN [Concomitant]
     Active Substance: METFORMIN HYDROCHLORIDE

REACTIONS (6)
  - Hospitalisation [Recovered/Resolved]
  - Weight decreased [Unknown]
  - Injection site pain [Unknown]
  - Product administered at inappropriate site [Unknown]
  - Inappropriate schedule of product administration [Unknown]
  - Product storage error [Unknown]
